FAERS Safety Report 10017564 (Version 2)
Quarter: 2014Q1

REPORT INFORMATION
  Report Type: Spontaneous
  Country: US (occurrence: US)
  Receive Date: 20140318
  Receipt Date: 20140318
  Transmission Date: 20141002
  Serious: No
  Sender: FDA-Public Use
  Company Number: US-BRISTOL-MYERS SQUIBB COMPANY-17347014

PATIENT
  Age: 84 Year
  Sex: Female

DRUGS (1)
  1. ERBITUX [Suspect]

REACTIONS (5)
  - Dry skin [Unknown]
  - Pruritus [Unknown]
  - Rash [Unknown]
  - Erythema [Unknown]
  - Ingrowing nail [Unknown]
